FAERS Safety Report 19831625 (Version 1)
Quarter: 2021Q3

REPORT INFORMATION
  Report Type: Spontaneous
  Country: US (occurrence: US)
  Receive Date: 20210915
  Receipt Date: 20210915
  Transmission Date: 20211014
  Serious: Yes (Death, Other)
  Sender: FDA-Public Use
  Company Number: US-GILEAD-2021-0548296

PATIENT
  Age: 56 Year
  Sex: Female

DRUGS (17)
  1. LEVEMIR [Concomitant]
     Active Substance: INSULIN DETEMIR
  2. FOLIC ACID. [Concomitant]
     Active Substance: FOLIC ACID
  3. POTASSIUM CHLORIDE. [Concomitant]
     Active Substance: POTASSIUM CHLORIDE
  4. GABAPENTIN. [Concomitant]
     Active Substance: GABAPENTIN
  5. LACTULOSE. [Concomitant]
     Active Substance: LACTULOSE
  6. RIFAXIMIN. [Concomitant]
     Active Substance: RIFAXIMIN
  7. SPIRONOLACTONE. [Concomitant]
     Active Substance: SPIRONOLACTONE
  8. FUROSEMIDE. [Concomitant]
     Active Substance: FUROSEMIDE
  9. SERTRALINE HYDROCHLORIDE. [Concomitant]
     Active Substance: SERTRALINE HYDROCHLORIDE
  10. RISPERIDONE. [Concomitant]
     Active Substance: RISPERIDONE
  11. PANTOPRAZOLE SODIUM. [Concomitant]
     Active Substance: PANTOPRAZOLE SODIUM
  12. NOVOLOG [Concomitant]
     Active Substance: INSULIN ASPART
  13. SOFOSBUVIR;VELPATASVIR [Suspect]
     Active Substance: SOFOSBUVIR\VELPATASVIR
     Indication: CHRONIC HEPATITIS C
     Dosage: 1 DOSAGE FORM, QD
     Route: 048
  14. IRON FERROUS SULFATE [Concomitant]
     Active Substance: FERROUS SULFATE
  15. NADOLOL. [Concomitant]
     Active Substance: NADOLOL
  16. LISINOPRIL. [Concomitant]
     Active Substance: LISINOPRIL
  17. ADVAIR HFA [Concomitant]
     Active Substance: FLUTICASONE PROPIONATE\SALMETEROL XINAFOATE

REACTIONS (1)
  - Death [Fatal]

NARRATIVE: CASE EVENT DATE: 20210827
